FAERS Safety Report 9230596 (Version 1)
Quarter: 2013Q2

REPORT INFORMATION
  Report Type: Spontaneous
  Country: US (occurrence: US)
  Receive Date: 20130415
  Receipt Date: 20130415
  Transmission Date: 20140414
  Serious: No
  Sender: FDA-Public Use
  Company Number: US-BAYER-2013-046757

PATIENT
  Sex: Male

DRUGS (2)
  1. ALEVE CAPLET [Suspect]
     Indication: ANALGESIC THERAPY
     Dosage: UNK,ONCE EVERY 12
     Route: 048
  2. TYLENOL NOS [Concomitant]
     Indication: LIGAMENT SPRAIN
     Dosage: 2 DF, QID

REACTIONS (1)
  - Drug ineffective [None]
